FAERS Safety Report 9183727 (Version 1)
Quarter: 2012Q4

REPORT INFORMATION
  Report Type: 
  Country: US (occurrence: US)
  Receive Date: 20121101
  Receipt Date: 20121101
  Transmission Date: 20130627
  Serious: No
  Sender: FDA-Public Use
  Company Number: US-TEVA-367853USA

PATIENT
  Sex: Female

DRUGS (2)
  1. COPAXONE [Suspect]
     Dosage: 20 Milligram Daily;
     Route: 058
  2. AMPYRA [Suspect]
     Dosage: 20 Milligram Daily;
     Route: 048
     Dates: start: 20100810

REACTIONS (1)
  - Contusion [Unknown]
